FAERS Safety Report 14634422 (Version 1)
Quarter: 2018Q1

REPORT INFORMATION
  Report Type: Spontaneous
  Country: US (occurrence: US)
  Receive Date: 20180313
  Receipt Date: 20180313
  Transmission Date: 20180509
  Serious: No
  Sender: FDA-Public Use
  Company Number: None

PATIENT
  Age: 46 Year
  Sex: Male

DRUGS (1)
  1. STELARA [Suspect]
     Active Substance: USTEKINUMAB
     Indication: PSORIASIS
     Dosage: FREQUENCY - EVERY 12 WEEKS
     Route: 058
     Dates: start: 20161207

REACTIONS (3)
  - Tachyphrenia [None]
  - Insomnia [None]
  - Anxiety [None]

NARRATIVE: CASE EVENT DATE: 20180302
